FAERS Safety Report 5300678-4 (Version None)
Quarter: 2007Q2

REPORT INFORMATION
  Report Type: 
  Country: None (occurrence: None)
  Receive Date: 20070418
  Receipt Date: 20070413
  Transmission Date: 20071010
  Serious: Yes (Other)
  Sender: FDA-Public Use
  Company Number: JP-JNJFOC-20070305640

PATIENT
  Sex: Female

DRUGS (2)
  1. RISPERDAL [Suspect]
     Indication: MENTAL IMPAIRMENT
     Route: 048
  2. LAXOSELIN [Concomitant]
     Indication: CONSTIPATION

REACTIONS (1)
  - SINUS BRADYCARDIA [None]
